FAERS Safety Report 9742056 (Version 2)
Quarter: 2013Q4

REPORT INFORMATION
  Report Type: Spontaneous
  Country: JP (occurrence: JP)
  Receive Date: 20131210
  Receipt Date: 20131227
  Transmission Date: 20140711
  Serious: Yes (Life-Threatening, Hospitalization)
  Sender: FDA-Public Use
  Company Number: JP-009507513-1312JPN003610

PATIENT
  Age: 66 Year
  Sex: Male

DRUGS (7)
  1. FOSAMAC TABLETS 35MG [Suspect]
     Indication: OSTEOPOROSIS
     Dosage: 35 MG, QW
     Route: 048
     Dates: start: 20131114, end: 20131126
  2. DEXAMETHASONE [Suspect]
     Indication: DRUG WITHDRAWAL SYNDROME
     Dosage: 1 MG, BID
     Route: 048
     Dates: start: 20131031, end: 20131126
  3. DEXAMETHASONE [Suspect]
     Dosage: 0.75 MG, BID
     Route: 048
     Dates: start: 20131017, end: 20131024
  4. DEXAMETHASONE [Suspect]
     Dosage: 1.25 MG, BID
     Route: 048
     Dates: start: 20131024, end: 20131030
  5. LYRICA [Suspect]
     Indication: PAIN
     Dosage: 2-4 CAP/DAY
     Route: 048
     Dates: start: 2011, end: 20131126
  6. MAGMITT [Suspect]
     Dosage: 250 MG, TID
     Route: 048
     Dates: start: 20131011, end: 20131126
  7. LANSOPRAZOLE [Concomitant]
     Indication: GASTRITIS
     Dosage: 15 MG, QD
     Route: 048
     Dates: start: 20131017, end: 20131126

REACTIONS (1)
  - Duodenal ulcer [Recovering/Resolving]
